FAERS Safety Report 24457585 (Version 1)
Quarter: 2024Q4

REPORT INFORMATION
  Report Type: Spontaneous
  Country: CN (occurrence: CN)
  Receive Date: 20241018
  Receipt Date: 20241018
  Transmission Date: 20250114
  Serious: No
  Sender: ROCHE
  Company Number: CN-BoehringerIngelheim-2023-BI-259175

PATIENT
  Age: 84 Year
  Sex: Female
  Weight: 62.0 kg

DRUGS (3)
  1. ALTEPLASE [Suspect]
     Active Substance: ALTEPLASE
     Indication: Cerebral infarction
     Route: 042
     Dates: start: 20230824, end: 20230824
  2. ALTEPLASE [Suspect]
     Active Substance: ALTEPLASE
     Indication: Infusion
     Dosage: INTRAVENOUSLY PUMPED.
     Route: 042
     Dates: start: 20230824, end: 20230824
  3. SODIUM CHLORIDE [Concomitant]
     Active Substance: SODIUM CHLORIDE
     Indication: Drug therapy
     Route: 042
     Dates: start: 20230824, end: 20230824

REACTIONS (2)
  - Gingival bleeding [Recovered/Resolved]
  - Off label use [Unknown]

NARRATIVE: CASE EVENT DATE: 20230824
